FAERS Safety Report 14758230 (Version 1)
Quarter: 2018Q2

REPORT INFORMATION
  Report Type: Spontaneous
  Country: US (occurrence: US)
  Receive Date: 20180413
  Receipt Date: 20180413
  Transmission Date: 20180711
  Serious: No
  Sender: FDA-Public Use
  Company Number: US-NOVOPROD-584351

PATIENT
  Age: 65 Year
  Sex: Female

DRUGS (1)
  1. TRESIBA FLEXTOUCH U200 [Suspect]
     Active Substance: INSULIN DEGLUDEC
     Indication: TYPE 2 DIABETES MELLITUS
     Dosage: 42 U, UNK
     Route: 058
     Dates: start: 2016, end: 20180128

REACTIONS (10)
  - Pain [Recovered/Resolved]
  - Urticaria [Unknown]
  - Burning sensation [Recovered/Resolved]
  - Injection site vesicles [Recovered/Resolved]
  - Rash erythematous [Recovered/Resolved]
  - Stress [Unknown]
  - Pruritus [Recovered/Resolved]
  - Hypersensitivity [Recovered/Resolved]
  - Blood glucose increased [Unknown]
  - Drug dose omission [Unknown]

NARRATIVE: CASE EVENT DATE: 201801
